FAERS Safety Report 9795561 (Version 1)
Quarter: 2014Q1

REPORT INFORMATION
  Report Type: Spontaneous
  Country: KR (occurrence: KR)
  Receive Date: 20140103
  Receipt Date: 20140103
  Transmission Date: 20141002
  Serious: Yes (Death)
  Sender: FDA-Public Use
  Company Number: KR-JNJFOC-20131215103

PATIENT
  Sex: 0

DRUGS (9)
  1. DOXORUBICIN [Suspect]
     Indication: T-CELL LYMPHOMA
     Dosage: ON DAYS 1-4, EPOCH REGIMEN
     Route: 042
  2. DOXORUBICIN [Suspect]
     Indication: T-CELL LYMPHOMA
     Dosage: ON DAY 1
     Route: 042
  3. CYCLOPHOSPHAMIDE [Suspect]
     Indication: T-CELL LYMPHOMA
     Dosage: ON DAY 1
     Route: 065
  4. CYCLOPHOSPHAMIDE [Suspect]
     Indication: T-CELL LYMPHOMA
     Dosage: ON DAY 5, EPOCH REGIMEN
     Route: 065
  5. VINCRISTINE [Suspect]
     Indication: T-CELL LYMPHOMA
     Dosage: ON DAYS 1-4, EPOCH REGIMEN
     Route: 065
  6. VINCRISTINE [Suspect]
     Indication: T-CELL LYMPHOMA
     Dosage: ON DAY 1
     Route: 065
  7. ETOPOSIDE [Suspect]
     Indication: T-CELL LYMPHOMA
     Dosage: ON DAYS 1-4
     Route: 065
  8. PREDNISOLONE [Suspect]
     Indication: T-CELL LYMPHOMA
     Dosage: ON DAYS 1-5, CHOP
     Route: 065
  9. PREDNISOLONE [Suspect]
     Indication: T-CELL LYMPHOMA
     Dosage: ON DAYS 1-5, EPOCH REGIMEN
     Route: 065

REACTIONS (2)
  - Disease progression [Fatal]
  - Sepsis [Fatal]
